FAERS Safety Report 21789924 (Version 1)
Quarter: 2022Q4

REPORT INFORMATION
  Report Type: Spontaneous
  Country: RU (occurrence: RU)
  Receive Date: 20221228
  Receipt Date: 20221228
  Transmission Date: 20230112
  Serious: Yes (Death, Other)
  Sender: FDA-Public Use
  Company Number: RU-AMGEN-RUSSP2022220736

PATIENT

DRUGS (1)
  1. XGEVA [Suspect]
     Active Substance: DENOSUMAB
     Indication: Metastases to bone
     Dosage: UNK
     Route: 065

REACTIONS (7)
  - Hormone-refractory prostate cancer [Fatal]
  - Death [Fatal]
  - Osteonecrosis of jaw [Unknown]
  - Gene mutation [Unknown]
  - BRCA1 gene mutation [Unknown]
  - BRCA2 gene mutation [Unknown]
  - Checkpoint kinase 2 gene mutation [Unknown]
